FAERS Safety Report 14544942 (Version 1)
Quarter: 2018Q1

REPORT INFORMATION
  Report Type: Spontaneous
  Country: GB (occurrence: GB)
  Receive Date: 20180217
  Receipt Date: 20180217
  Transmission Date: 20180509
  Serious: Yes (Hospitalization)
  Sender: FDA-Public Use
  Company Number: GB-MYLANLABS-2018M1010309

PATIENT
  Age: 35 Year
  Sex: Female
  Weight: 58 kg

DRUGS (4)
  1. SERTRALINE [Concomitant]
     Active Substance: SERTRALINE HYDROCHLORIDE
     Indication: PRODUCT USED FOR UNKNOWN INDICATION
     Dosage: ON FOR OVER 4 YEARS.
  2. RANITIDINE HYDROCHLORIDE. [Concomitant]
     Active Substance: RANITIDINE HYDROCHLORIDE
     Indication: PRODUCT USED FOR UNKNOWN INDICATION
  3. VENLAFAXINE [Suspect]
     Active Substance: VENLAFAXINE HYDROCHLORIDE
     Indication: DEPRESSION
     Dosage: 75 MG, UNK
     Route: 048
     Dates: start: 20171026, end: 201711
  4. VENLAFAXINE [Suspect]
     Active Substance: VENLAFAXINE HYDROCHLORIDE
     Dosage: 150 MG, UNK
     Route: 048
     Dates: start: 201711, end: 20171121

REACTIONS (16)
  - Hallucination, visual [Unknown]
  - Incoherent [Unknown]
  - Dry mouth [Unknown]
  - Restlessness [Unknown]
  - Muscle spasms [Unknown]
  - Paranoia [Unknown]
  - Sinus tachycardia [Unknown]
  - Atrioventricular block first degree [Unknown]
  - Eye disorder [Unknown]
  - Agitation [Unknown]
  - Rhabdomyolysis [Unknown]
  - Blood potassium decreased [Unknown]
  - Substance-induced psychotic disorder [Recovered/Resolved with Sequelae]
  - Electrocardiogram QT prolonged [Unknown]
  - Tremor [Unknown]
  - Dyskinesia [Unknown]

NARRATIVE: CASE EVENT DATE: 20171029
